FAERS Safety Report 9202159 (Version 1)
Quarter: 2013Q2

REPORT INFORMATION
  Report Type: Spontaneous
  Country: US (occurrence: US)
  Receive Date: 20130401
  Receipt Date: 20130401
  Transmission Date: 20140414
  Serious: Yes (Hospitalization)
  Sender: FDA-Public Use
  Company Number: US-GLAXOSMITHKLINE-A1016697A

PATIENT
  Age: 72 Year
  Sex: Male

DRUGS (3)
  1. VENTOLIN [Suspect]
     Indication: DYSPNOEA
     Route: 055
     Dates: start: 201203
  2. KEPPRA [Concomitant]
  3. ASPIRIN [Concomitant]

REACTIONS (2)
  - Convulsion [Recovering/Resolving]
  - Nocturnal dyspnoea [Recovering/Resolving]
